FAERS Safety Report 7892811-5 (Version None)
Quarter: 2011Q4

REPORT INFORMATION
  Report Type: 
  Country: None (occurrence: None)
  Receive Date: 20111104
  Receipt Date: 20111031
  Transmission Date: 20120403
  Serious: Yes (Other)
  Sender: FDA-Public Use
  Company Number: US-JNJFOC-20110505595

PATIENT
  Sex: Female

DRUGS (4)
  1. PREDNISONE [Suspect]
     Indication: CHRONIC OBSTRUCTIVE PULMONARY DISEASE
     Route: 048
  2. ADVAIR DISKUS 100/50 [Suspect]
     Indication: CHRONIC OBSTRUCTIVE PULMONARY DISEASE
     Route: 055
  3. LEVAQUIN [Suspect]
     Indication: SINUSITIS
     Route: 048
  4. LEVAQUIN [Suspect]
     Indication: BRONCHITIS
     Route: 048

REACTIONS (2)
  - TENDON RUPTURE [None]
  - ROTATOR CUFF SYNDROME [None]
